FAERS Safety Report 17213492 (Version 2)
Quarter: 2020Q1

REPORT INFORMATION
  Report Type: Spontaneous
  Country: US (occurrence: US)
  Receive Date: 20191230
  Receipt Date: 20200103
  Transmission Date: 20200409
  Serious: No
  Sender: FDA-Public Use
  Company Number: US-JNJFOC-20191234078

PATIENT
  Age: 62 Year
  Sex: Female

DRUGS (1)
  1. SIMPONI [Suspect]
     Active Substance: GOLIMUMAB
     Indication: PRODUCT USED FOR UNKNOWN INDICATION
     Route: 058
     Dates: start: 201903, end: 201911

REACTIONS (10)
  - Bronchitis [Unknown]
  - Product intolerance [Unknown]
  - Inappropriate schedule of product administration [Unknown]
  - Sinus headache [Unknown]
  - Therapeutic response decreased [Unknown]
  - Off label use [Unknown]
  - Nasopharyngitis [Unknown]
  - Insomnia [Unknown]
  - Skin ulcer [Unknown]
  - Mouth ulceration [Unknown]

NARRATIVE: CASE EVENT DATE: 20191203
